FAERS Safety Report 4541790-7 (Version None)
Quarter: 2004Q4

REPORT INFORMATION
  Report Type: 
  Country: None (occurrence: None)
  Receive Date: 20041230
  Receipt Date: 20041216
  Transmission Date: 20050328
  Serious: Yes (Hospitalization)
  Sender: FDA-Public Use
  Company Number: 200414763FR

PATIENT
  Sex: Male

DRUGS (2)
  1. RILUTEK [Suspect]
     Indication: AMYOTROPHIC LATERAL SCLEROSIS
     Route: 048
     Dates: start: 20040801, end: 20041201
  2. TEGELINE [Concomitant]
     Indication: POLYNEUROPATHY
     Route: 042
     Dates: start: 20041213, end: 20041215

REACTIONS (2)
  - THROMBOCYTOPENIA [None]
  - WHITE BLOOD CELL COUNT DECREASED [None]
